FAERS Safety Report 5538341-7 (Version None)
Quarter: 2007Q4

REPORT INFORMATION
  Report Type: 
  Country: None (occurrence: None)
  Receive Date: 20071205
  Receipt Date: 20071121
  Transmission Date: 20080405
  Serious: Yes (Other)
  Sender: FDA-Public Use
  Company Number: 2007SP023952

PATIENT
  Age: 57 Year
  Sex: Female

DRUGS (5)
  1. MIRALAX [Suspect]
     Indication: CONSTIPATION
     Dosage: ONCE; PO
     Route: 048
     Dates: start: 20071120
  2. ACTOS [Concomitant]
  3. CYMBALTA [Concomitant]
  4. PROTONIX [Concomitant]
  5. ZEGERID [Concomitant]

REACTIONS (3)
  - DYSPNOEA [None]
  - NAUSEA [None]
  - PHARYNGEAL OEDEMA [None]
